FAERS Safety Report 6007366-X (Version None)
Quarter: 2008Q4

REPORT INFORMATION
  Report Type: 
  Country: None (occurrence: None)
  Receive Date: 20081217
  Receipt Date: 20080318
  Transmission Date: 20090506
  Serious: No
  Sender: FDA-Public Use
  Company Number: US-ASTRAZENECA-2008UW05447

PATIENT
  Age: 70 Year
  Sex: Male
  Weight: 74.8 kg

DRUGS (5)
  1. CRESTOR [Suspect]
     Indication: BLOOD CHOLESTEROL INCREASED
     Route: 048
     Dates: start: 20030101
  2. GLYBURIDE [Concomitant]
  3. METFORMIN HCL [Concomitant]
  4. LEVATHYROXINE [Concomitant]
  5. NAPROXEN [Concomitant]

REACTIONS (2)
  - NAUSEA [None]
  - POLYMYALGIA RHEUMATICA [None]
